FAERS Safety Report 7088488-1 (Version None)
Quarter: 2010Q4

REPORT INFORMATION
  Report Type: 
  Country: None (occurrence: None)
  Receive Date: 20101028
  Receipt Date: 20101021
  Transmission Date: 20110411
  Serious: Yes (Life-Threatening, Hospitalization, Other)
  Sender: FDA-Public Use
  Company Number: 2009AC000018

PATIENT
  Age: 64 Year
  Sex: Male

DRUGS (18)
  1. DIGOXIN [Suspect]
     Dosage: .125 MG; PO
     Route: 048
     Dates: start: 20050101
  2. DIGOXIN [Suspect]
     Indication: CARDIAC FAILURE CONGESTIVE
     Dosage: 0.125 MG;QD; PO
     Route: 048
     Dates: start: 20041201, end: 20080801
  3. SPIRIVA [Concomitant]
  4. ASPIRIN [Concomitant]
  5. VITAMIN B COMPLEX [Concomitant]
  6. PLAVIX [Concomitant]
  7. CARVEDILOL [Concomitant]
  8. LISINOPRIL [Concomitant]
  9. ALBUTEROL [Concomitant]
  10. VENTOLIN [Concomitant]
  11. GLUCOSAMINE [Concomitant]
  12. BEXTRA [Concomitant]
  13. HYDROCODONE [Concomitant]
  14. AMITRIPTYLINE HCL [Concomitant]
  15. NAPROXEN [Concomitant]
  16. NITROGLYCERIN [Concomitant]
  17. COUMADIN [Concomitant]
  18. M.V.I. [Concomitant]

REACTIONS (34)
  - ABDOMINAL PAIN [None]
  - ACTIVITIES OF DAILY LIVING IMPAIRED [None]
  - AORTIC ANEURYSM [None]
  - ARRHYTHMIA [None]
  - ARTHRITIS [None]
  - ARTHROPOD BITE [None]
  - BREAST PAIN [None]
  - CARPAL TUNNEL SYNDROME [None]
  - CHRONIC OBSTRUCTIVE PULMONARY DISEASE [None]
  - CONDITION AGGRAVATED [None]
  - CONTUSION [None]
  - CORONARY ARTERY DISEASE [None]
  - CORONARY ARTERY OCCLUSION [None]
  - COSTOCHONDRITIS [None]
  - DEAFNESS [None]
  - DECREASED ACTIVITY [None]
  - ECONOMIC PROBLEM [None]
  - HEPATIC CYST [None]
  - HYPERLIPIDAEMIA [None]
  - HYPERTENSION [None]
  - HYPOTENSION [None]
  - JOINT ABSCESS [None]
  - LUNG DISORDER [None]
  - MULTIPLE INJURIES [None]
  - MYOCARDIAL INFARCTION [None]
  - NOCTURIA [None]
  - PERINEAL CYST [None]
  - PNEUMONIA [None]
  - RENAL FAILURE CHRONIC [None]
  - SEXUAL DYSFUNCTION [None]
  - SUBCLAVIAN VEIN THROMBOSIS [None]
  - THROMBOPHLEBITIS [None]
  - VENTRICULAR EXTRASYSTOLES [None]
  - WEIGHT DECREASED [None]
